FAERS Safety Report 6252285-7 (Version None)
Quarter: 2009Q3

REPORT INFORMATION
  Report Type: 
  Country: None (occurrence: None)
  Receive Date: 20090701
  Receipt Date: 20090624
  Transmission Date: 20100115
  Serious: Yes (Death)
  Sender: FDA-Public Use
  Company Number: JP-ASTRAZENECA-2009SE02134

PATIENT
  Age: 67 Year
  Sex: Male
  Weight: 44.4 kg

DRUGS (11)
  1. MEROPEN [Suspect]
     Indication: DISSEMINATED INTRAVASCULAR COAGULATION
     Route: 042
     Dates: start: 20090416, end: 20090424
  2. FUTHAN [Suspect]
     Indication: DISSEMINATED INTRAVASCULAR COAGULATION
     Route: 042
     Dates: start: 20090414, end: 20090416
  3. FUTHAN [Suspect]
     Route: 042
     Dates: start: 20090417, end: 20090421
  4. HEPARIN SODIUM [Concomitant]
     Route: 042
  5. TAKEPRON [Concomitant]
     Indication: REFLUX OESOPHAGITIS
     Route: 048
     Dates: start: 20090224
  6. NITRODERM [Concomitant]
     Dosage: 1 DOSAGE FORM/DAY
     Route: 062
  7. DEPAS [Concomitant]
     Indication: URTICARIA CHRONIC
     Route: 048
     Dates: start: 20090311, end: 20090414
  8. LENDORMIN D [Concomitant]
     Route: 048
  9. ALLELOCK [Concomitant]
     Indication: URTICARIA CHRONIC
     Route: 048
     Dates: start: 20090311, end: 20090414
  10. ASPIRIN [Concomitant]
     Indication: CEREBRAL INFARCTION
     Route: 048
     Dates: start: 20090311, end: 20090404
  11. PREDNISOLONE [Concomitant]
     Dates: start: 20090420

REACTIONS (1)
  - LIVER DISORDER [None]
